FAERS Safety Report 16776250 (Version 1)
Quarter: 2019Q3

REPORT INFORMATION
  Report Type: Spontaneous
  Country: US (occurrence: US)
  Receive Date: 20190716
  Receipt Date: 20190716
  Transmission Date: 20191005
  Serious: Yes (Other)
  Sender: FDA-Public Use
  Company Number: None

PATIENT
  Age: 57 Year
  Sex: Female
  Weight: 72.57 kg

DRUGS (3)
  1. LIPIDOR (GENERIC) [Concomitant]
  2. FISH OIL [Concomitant]
     Active Substance: FISH OIL
  3. EQUATE SUPPORT MOISTURE LUBRICANT EYE [Suspect]
     Active Substance: PROPYLENE GLYCOL
     Indication: DRY EYE
     Dosage: ?          QUANTITY:1 DROP EACH EYE;?
     Route: 047
     Dates: start: 20190610, end: 20190708

REACTIONS (1)
  - Hordeolum [None]

NARRATIVE: CASE EVENT DATE: 201906
